FAERS Safety Report 7770751-X (Version None)
Quarter: 2011Q3

REPORT INFORMATION
  Report Type: 
  Country: None (occurrence: None)
  Receive Date: 20110922
  Receipt Date: 20110302
  Transmission Date: 20111222
  Serious: No
  Sender: FDA-Public Use
  Company Number: US-ASTRAZENECA-2011SE11659

PATIENT
  Age: 37 Year
  Sex: Male
  Weight: 83.9 kg

DRUGS (4)
  1. SEROQUEL XR [Suspect]
     Indication: BIPOLAR DISORDER
     Route: 048
     Dates: start: 20110201
  2. WELLBUTRIN [Concomitant]
  3. PROZAC [Concomitant]
  4. XANAX [Concomitant]

REACTIONS (2)
  - BRADYPHRENIA [None]
  - MUSCLE TWITCHING [None]
